FAERS Safety Report 22539269 (Version 1)
Quarter: 2023Q2

REPORT INFORMATION
  Report Type: Spontaneous
  Country: ES (occurrence: ES)
  Receive Date: 20230609
  Receipt Date: 20230609
  Transmission Date: 20230721
  Serious: Yes (Hospitalization)
  Sender: FDA-Public Use
  Company Number: None

PATIENT
  Age: 16 Year
  Sex: Female

DRUGS (4)
  1. IBUPROFEN [Suspect]
     Active Substance: IBUPROFEN
     Indication: Neck pain
     Dates: start: 202207, end: 202208
  2. NAPROXEN [Suspect]
     Active Substance: NAPROXEN
     Indication: Neck pain
     Dosage: 1000 MILLIGRAM DAILY; 500 MG 1-0-1  , NAPROXENO (2002A)
     Dates: start: 20220805, end: 20220812
  3. DIAZEPAM [Suspect]
     Active Substance: DIAZEPAM
     Indication: Neck pain
     Dosage: DIAZEPAM (730A)
     Dates: start: 202207, end: 202208
  4. TRAMADOL [Concomitant]
     Active Substance: TRAMADOL
     Indication: Headache
     Dosage: 100 MILLIGRAM DAILY; 50 MG 1-0-1  , TRAMADOL (2389A)
     Dates: start: 20220808, end: 20220812

REACTIONS (1)
  - Meningitis aseptic [Recovered/Resolved]

NARRATIVE: CASE EVENT DATE: 20220808
